FAERS Safety Report 5799281-1 (Version None)
Quarter: 2008Q3

REPORT INFORMATION
  Report Type: 
  Country: None (occurrence: None)
  Receive Date: 20080702
  Receipt Date: 20080624
  Transmission Date: 20090109
  Serious: Yes (Death)
  Sender: FDA-Public Use
  Company Number: JP-PFIZER INC-2008050551

PATIENT
  Age: 72 Year
  Sex: Male

DRUGS (8)
  1. HALCION [Suspect]
     Dosage: DAILY DOSE:.5MG
     Route: 048
  2. FENTANYL [Suspect]
  3. ZOLOFT [Concomitant]
     Route: 048
  4. LASIX [Concomitant]
     Route: 048
  5. TAKEPRON [Concomitant]
     Route: 048
  6. DOGMATYL [Concomitant]
     Route: 048
  7. MAGNESIUM CARBONATE [Concomitant]
     Route: 048
  8. LEUCON [Concomitant]
     Route: 048

REACTIONS (5)
  - AMNESIA [None]
  - CONFUSIONAL STATE [None]
  - MALIGNANT NEOPLASM PROGRESSION [None]
  - SOMNOLENCE [None]
  - URINE OUTPUT DECREASED [None]
